FAERS Safety Report 4294424-3 (Version None)
Quarter: 2004Q1

REPORT INFORMATION
  Report Type: 
  Country: None (occurrence: None)
  Receive Date: 20040211
  Receipt Date: 20040126
  Transmission Date: 20041129
  Serious: Yes (Other)
  Sender: FDA-Public Use
  Company Number: US_990624417

PATIENT
  Age: 77 Year
  Sex: Female
  Weight: 57 kg

DRUGS (2)
  1. HUMALOG [Suspect]
     Indication: DIABETES MELLITUS
     Dosage: 15 U/DAY
     Dates: start: 19960101
  2. HUMULIN N [Suspect]
     Indication: DIABETES MELLITUS
     Dosage: 67 U/DAY
     Dates: start: 19960101

REACTIONS (5)
  - CATARACT [None]
  - INJECTION SITE HAEMORRHAGE [None]
  - MYOCARDIAL INFARCTION [None]
  - PHARMACEUTICAL PRODUCT COMPLAINT [None]
  - VISUAL ACUITY REDUCED [None]
